FAERS Safety Report 5577110-9 (Version None)
Quarter: 2007Q4

REPORT INFORMATION
  Report Type: 
  Country: None (occurrence: None)
  Receive Date: 20071130
  Receipt Date: 20070912
  Transmission Date: 20080405
  Serious: No
  Sender: FDA-Public Use
  Company Number: US200709002650

PATIENT
  Age: 68 Year
  Sex: Female

DRUGS (1)
  1. BYETTA [Suspect]
     Indication: DIABETES MELLITUS
     Dosage: 5 UG, 2/D, 10 UNK, SUBCUTANEOUS
     Dates: start: 20070912

REACTIONS (1)
  - INCORRECT DOSE ADMINISTERED [None]
